FAERS Safety Report 11877450 (Version 5)
Quarter: 2016Q2

REPORT INFORMATION
  Report Type: Spontaneous
  Country: KR (occurrence: KR)
  Receive Date: 20151229
  Receipt Date: 20160426
  Transmission Date: 20160815
  Serious: Yes (Death)
  Sender: FDA-Public Use
  Company Number: KR-AMGEN-KORCT2015139162

PATIENT
  Age: 70 Year
  Sex: Male
  Weight: 60 kg

DRUGS (14)
  1. RITUXIMAB [Concomitant]
     Active Substance: RITUXIMAB
     Dosage: 620 MG, UNK
     Route: 042
     Dates: start: 20150512, end: 20150512
  2. CARVEDILOL. [Concomitant]
     Active Substance: CARVEDILOL
     Dosage: 6.25 MG, UNK
     Route: 048
     Dates: end: 20150518
  3. TAMSULOSIN HCL [Concomitant]
     Active Substance: TAMSULOSIN
     Dosage: 0.2 MG, UNK
     Route: 048
     Dates: end: 20150518
  4. VINCRISTINE [Concomitant]
     Active Substance: VINCRISTINE
     Dosage: 2 MG, UNK
     Route: 042
     Dates: start: 20150512, end: 20150512
  5. PERINDOPRIL TERT BUTYLAMINE [Concomitant]
     Dosage: 2 MG, UNK
     Route: 048
     Dates: end: 20150518
  6. G-LASTA [Suspect]
     Active Substance: PEGFILGRASTIM
     Indication: FEBRILE NEUTROPENIA
     Dosage: 6 MG, 1X/3WEEKS
     Route: 058
     Dates: start: 20150513
  7. DOXORUBICIN [Concomitant]
     Active Substance: DOXORUBICIN
     Dosage: 60 MG, UNK
     Route: 042
     Dates: start: 20150512, end: 20150512
  8. PREDNISOLONE. [Concomitant]
     Active Substance: PREDNISOLONE
     Dosage: 100 MG, UNK
     Route: 048
     Dates: start: 20150512, end: 20150517
  9. MONTELUKAST [Concomitant]
     Active Substance: MONTELUKAST SODIUM
     Dosage: 10 MG, UNK
     Route: 048
     Dates: end: 20150518
  10. CYCLOPHOSPHAMIDE. [Concomitant]
     Active Substance: CYCLOPHOSPHAMIDE
     Dosage: 1000 MG, UNK
     Route: 042
     Dates: start: 20150512, end: 20150512
  11. DOXOFYLLINE [Concomitant]
     Active Substance: DOXOFYLLINE
     Dosage: 800 MG, UNK
     Route: 048
     Dates: end: 20150518
  12. DUTASTERIDE. [Concomitant]
     Active Substance: DUTASTERIDE
     Dosage: 0.5 MG, UNK
     Route: 048
     Dates: end: 20150518
  13. PERINDOPRIL TERT BUTYLAMINE [Concomitant]
     Dosage: 2 MG, UNK
     Route: 048
     Dates: end: 20150518
  14. CIPROFLOXACIN. [Concomitant]
     Active Substance: CIPROFLOXACIN
     Dosage: 800 MG, UNK
     Route: 042
     Dates: start: 20150509, end: 20150518

REACTIONS (1)
  - Hypotension [Fatal]

NARRATIVE: CASE EVENT DATE: 20150518
